FAERS Safety Report 19085826 (Version 1)
Quarter: 2021Q2

REPORT INFORMATION
  Report Type: Spontaneous
  Country: FR (occurrence: FR)
  Receive Date: 20210402
  Receipt Date: 20210402
  Transmission Date: 20210717
  Serious: Yes (Death, Other)
  Sender: FDA-Public Use
  Company Number: FR-SUN PHARMACEUTICAL INDUSTRIES LTD-2021RR-289092

PATIENT
  Age: 86 Year
  Sex: Male
  Weight: 100 kg

DRUGS (11)
  1. FUMAFER [Concomitant]
     Active Substance: FERROUS FUMARATE
     Indication: MINERAL SUPPLEMENTATION
     Dosage: 1 DOSAGE FORM, DAILY
     Route: 048
     Dates: start: 20210212, end: 20210212
  2. TRAMADOL BASE [Suspect]
     Active Substance: TRAMADOL
     Indication: PAIN
     Dosage: 150 MILLIGRAM, DAILY
     Route: 048
     Dates: start: 20210211, end: 20210212
  3. ABASAGLAR 100 UNITES/ML, SOLUTION INJECTABLE EN STYLO PREREMPLI [Concomitant]
     Active Substance: INSULIN GLARGINE
     Indication: PRODUCT USED FOR UNKNOWN INDICATION
     Dosage: 20 INTERNATIONAL UNIT, IN TOTAL
     Route: 058
     Dates: start: 20210212, end: 20210212
  4. PANTOPRAZOLE [Concomitant]
     Active Substance: PANTOPRAZOLE
     Indication: PRODUCT USED FOR UNKNOWN INDICATION
     Dosage: 80 MILLIGRAM, DAILY
     Route: 042
     Dates: start: 20210211
  5. MORPHINE [Suspect]
     Active Substance: MORPHINE
     Indication: PAIN
     Dosage: 1 MILLIGRAM, 1DOSE/HR
     Route: 042
     Dates: start: 20210212, end: 20210213
  6. ALPRAZOLAM. [Suspect]
     Active Substance: ALPRAZOLAM
     Indication: ANXIETY
     Dosage: 0.5 MILLIGRAM, DAILY
     Route: 048
     Dates: start: 20210211, end: 20210212
  7. CEFTRIAXONE BASE [Concomitant]
     Active Substance: CEFTRIAXONE
     Indication: INFECTION
     Dosage: 1 GRAM, DAILY
     Route: 042
     Dates: start: 20210212, end: 20210216
  8. LEVOTHYROX 100 MICROGRAMMES, COMPRIME SECABLE [Concomitant]
     Active Substance: LEVOTHYROXINE
     Indication: HYPOTHYROIDISM
     Dosage: 1 DOSAGE FORM, DAILY
     Route: 048
     Dates: start: 20210212, end: 20210212
  9. MIANSERINE (CHLORHYDRATE DE) [Concomitant]
     Active Substance: MIANSERIN HYDROCHLORIDE
     Indication: MIXED ANXIETY AND DEPRESSIVE DISORDER
     Dosage: 30 MILLIGRAM, DAILY
     Route: 048
     Dates: start: 20210211, end: 20210211
  10. ALLOPURINOL. [Concomitant]
     Active Substance: ALLOPURINOL
     Indication: GOUT
     Dosage: 100 MILLIGRAM, DAILY
     Route: 048
     Dates: start: 20210211, end: 20210212
  11. FUROSEMIDE. [Concomitant]
     Active Substance: FUROSEMIDE
     Indication: HYPERTENSION
     Dosage: 500 MILLIGRAM, DAILY
     Route: 048
     Dates: start: 20210212, end: 20210212

REACTIONS (2)
  - Dependence on oxygen therapy [Recovered/Resolved]
  - Coma [Recovered/Resolved]

NARRATIVE: CASE EVENT DATE: 20210213
